FAERS Safety Report 23083997 (Version 4)
Quarter: 2024Q3

REPORT INFORMATION
  Report Type: Spontaneous
  Country: US (occurrence: US)
  Receive Date: 20231019
  Receipt Date: 20240802
  Transmission Date: 20241016
  Serious: No
  Sender: PFIZER
  Company Number: US-PFIZER INC-202300331450

PATIENT
  Age: 71 Year
  Sex: Female
  Weight: 90.703 kg

DRUGS (2)
  1. METHOTREXATE SODIUM [Suspect]
     Active Substance: METHOTREXATE SODIUM
     Indication: Arthritis
     Dosage: SPILLS 2.5 MG 1 A WEEK
  2. METHOTREXATE SODIUM [Suspect]
     Active Substance: METHOTREXATE SODIUM
     Dosage: 8 PILLS 2.5 MG BY MOUTH
     Route: 048

REACTIONS (2)
  - Drug ineffective [Unknown]
  - Nodule [Unknown]
